FAERS Safety Report 24544071 (Version 1)
Quarter: 2024Q4

REPORT INFORMATION
  Report Type: Report from Study
  Country: GB (occurrence: GB)
  Receive Date: 20241024
  Receipt Date: 20241024
  Transmission Date: 20250115
  Serious: Yes (Death, Other)
  Sender: AUROBINDO
  Company Number: GB-AUROBINDO-AUR-APL-2023-077001

PATIENT
  Age: 70 Year
  Sex: Male

DRUGS (2)
  1. CELECOXIB [Suspect]
     Active Substance: CELECOXIB
     Indication: Chemotherapy
     Dosage: 100 MILLIGRAM, TWO TIMES A DAY
     Route: 065
  2. METHOTREXATE SODIUM [Suspect]
     Active Substance: METHOTREXATE SODIUM
     Indication: Chemotherapy
     Dosage: 15 MILLIGRAM, EVERY WEEK (ONCE A WEEK)
     Route: 065

REACTIONS (3)
  - Leukoplakia oral [Fatal]
  - Metastasis [Fatal]
  - Leukoplakia [Fatal]
